FAERS Safety Report 5033211-5 (Version None)
Quarter: 2006Q2

REPORT INFORMATION
  Report Type: 
  Country: None (occurrence: None)
  Receive Date: 20060620
  Receipt Date: 20060612
  Transmission Date: 20061013
  Serious: Yes (Other)
  Sender: FDA-Public Use
  Company Number: US200606003040

PATIENT
  Age: 47 Year
  Sex: Male
  Weight: 104.3 kg

DRUGS (3)
  1. ZYPREXA [Suspect]
     Indication: SLEEP DISORDER
     Dosage: SEE IMAGE
     Dates: start: 19990101, end: 20020101
  2. ZYPREXA [Suspect]
     Indication: SLEEP DISORDER
     Dosage: SEE IMAGE
     Dates: start: 20020101, end: 20060401
  3. DEPAKOTE [Concomitant]

REACTIONS (11)
  - CONVULSION [None]
  - DIZZINESS [None]
  - DYSPEPSIA [None]
  - DYSPNOEA [None]
  - GASTRIC DISORDER [None]
  - HYPERCHLORHYDRIA [None]
  - HYPERTENSION [None]
  - LOSS OF CONSCIOUSNESS [None]
  - NERVE INJURY [None]
  - OEDEMA PERIPHERAL [None]
  - WEIGHT INCREASED [None]
